FAERS Safety Report 5547233-9 (Version None)
Quarter: 2007Q4

REPORT INFORMATION
  Report Type: 
  Country: None (occurrence: None)
  Receive Date: 20071206
  Receipt Date: 20071126
  Transmission Date: 20080405
  Serious: Yes (Hospitalization)
  Sender: FDA-Public Use
  Company Number: CAP07000474

PATIENT
  Sex: Female

DRUGS (3)
  1. ETIDRONATE DISODIUM [Suspect]
     Indication: OSTEOPOROSIS
     Dosage: 1 TABLET CYCLIC DAILY, ORAL
     Route: 048
     Dates: start: 19970101
  2. PULMICORT [Concomitant]
  3. VENTOLIN /00139501/ (SALBUTAMOL) [Concomitant]

REACTIONS (5)
  - ANGINA PECTORIS [None]
  - COLITIS ISCHAEMIC [None]
  - DIVERTICULUM [None]
  - GASTROINTESTINAL DISORDER [None]
  - STOMACH DISCOMFORT [None]
